FAERS Safety Report 8548449 (Version 2)
Quarter: 2012Q4

REPORT INFORMATION
  Report Type: 
  Country: US (occurrence: US)
  Receive Date: 20120507
  Receipt Date: 20121015
  Transmission Date: 20130627
  Serious: Yes (Other)
  Sender: FDA-Public Use
  Company Number: US-BAYER-2012-043017

PATIENT
  Age: 21 Year
  Sex: Female
  Weight: 47.17 kg

DRUGS (1)
  1. YAZ [Suspect]
     Indication: PREMENSTRUAL SYNDROME
     Dosage: UNK
     Dates: start: 200809, end: 200910

REACTIONS (8)
  - Gallbladder non-functioning [None]
  - Major depression [None]
  - Injury [None]
  - Pain [None]
  - Faecal incontinence [None]
  - Anxiety [None]
  - Depression [None]
  - Pain [None]
